FAERS Safety Report 5769239-7 (Version None)
Quarter: 2008Q2

REPORT INFORMATION
  Report Type: 
  Country: None (occurrence: None)
  Receive Date: 20080612
  Receipt Date: 20080325
  Transmission Date: 20081010
  Serious: No
  Sender: FDA-Public Use
  Company Number: US-ABBOTT-08P-163-0444191-00

PATIENT
  Sex: Female
  Weight: 56.75 kg

DRUGS (10)
  1. HUMIRA [Suspect]
     Indication: CROHN'S DISEASE
     Dosage: LOADING DOSE
     Route: 058
     Dates: start: 20080219, end: 20080219
  2. HUMIRA [Suspect]
     Indication: COLITIS
     Route: 058
     Dates: start: 20080304, end: 20080304
  3. HUMIRA [Suspect]
     Dates: start: 20080321, end: 20080321
  4. HUMIRA [Suspect]
     Route: 058
  5. PREDNISONE TAB [Concomitant]
     Indication: CROHN'S DISEASE
     Route: 048
  6. MESALAMINE [Concomitant]
     Indication: CROHN'S DISEASE
     Route: 048
  7. DICYCLOVERINE [Concomitant]
     Indication: COLITIS
     Route: 048
  8. ESOMEPRAZOLE MAGNESIUM [Concomitant]
     Indication: DYSPEPSIA
     Route: 048
  9. ESTRODIL [Concomitant]
     Indication: HYSTERECTOMY
     Route: 048
  10. Z-PACK ZITHROMYCIN [Concomitant]
     Indication: UPPER RESPIRATORY TRACT INFECTION
     Route: 048
     Dates: start: 20080326

REACTIONS (2)
  - ACCIDENTAL OVERDOSE [None]
  - UPPER RESPIRATORY TRACT INFECTION [None]
